FAERS Safety Report 24220514 (Version 2)
Quarter: 2025Q4

REPORT INFORMATION
  Report Type: Spontaneous
  Country: EU (occurrence: EU)
  Receive Date: 20240818
  Receipt Date: 20251208
  Transmission Date: 20260118
  Serious: Yes (Other)
  Sender: AUROBINDO
  Company Number: EU-002147023-NVSC2020PL009716

PATIENT
  Age: 34 Year
  Sex: Female

DRUGS (3)
  1. MYCOPHENOLATE MOFETIL [Suspect]
     Active Substance: MYCOPHENOLATE MOFETIL
     Indication: Systemic lupus erythematosus
     Dosage: 1 GRAM, TWO TIMES A DAY (IN THE MORNING AND IN THE EVENING)
     Route: 065
  2. MYCOPHENOLATE MOFETIL [Suspect]
     Active Substance: MYCOPHENOLATE MOFETIL
     Dosage: 1 MILLIGRAM, ONCE A DAY (1 MG, QD (IN MORNING) )
     Route: 065
  3. METHYLPREDNISOLONE [Suspect]
     Active Substance: METHYLPREDNISOLONE
     Indication: Systemic lupus erythematosus
     Dosage: 4 MILLIGRAM(IN THE MORNING)
     Route: 065

REACTIONS (4)
  - Systemic lupus erythematosus [Recovering/Resolving]
  - Nausea [Recovered/Resolved]
  - Product use in unapproved indication [Unknown]
  - Product dose omission issue [Unknown]
